FAERS Safety Report 10511162 (Version 1)
Quarter: 2014Q4

REPORT INFORMATION
  Report Type: Spontaneous
  Country: BG (occurrence: BG)
  Receive Date: 20141010
  Receipt Date: 20141010
  Transmission Date: 20150528
  Serious: Yes (Hospitalization)
  Sender: FDA-Public Use
  Company Number: BG-MYLANLABS-2014M1006699

PATIENT

DRUGS (5)
  1. FURANTHRIL SPEZIAL [Interacting]
     Active Substance: FUROSEMIDE
     Dosage: 40 MG, QD
     Route: 065
  2. MOXOTENS [Concomitant]
     Dosage: 0.2 MG/DAY
     Route: 065
  3. LITHIUM [Suspect]
     Active Substance: LITHIUM CARBONATE
     Dosage: 450 MG, BID
     Route: 065
  4. LISINOPRIL. [Interacting]
     Active Substance: LISINOPRIL
     Dosage: 10 MG, QD
     Route: 065
  5. TORVALIPIN [Concomitant]
     Dosage: 10 MG/DAY
     Route: 065

REACTIONS (16)
  - Nausea [None]
  - Ataxia [None]
  - Agitation [None]
  - Body mass index decreased [None]
  - Dry skin [None]
  - Drug interaction [Recovered/Resolved]
  - Restlessness [None]
  - Toxicity to various agents [Recovered/Resolved]
  - Gait disturbance [None]
  - Confusional state [None]
  - Asthenia [None]
  - Neurotoxicity [Recovered/Resolved]
  - Anxiety [None]
  - Antipsychotic drug level above therapeutic [None]
  - Memory impairment [None]
  - Pallor [None]
